FAERS Safety Report 7383548-X (Version None)
Quarter: 2011Q1

REPORT INFORMATION
  Report Type: 
  Country: None (occurrence: None)
  Receive Date: 20110328
  Receipt Date: 20110328
  Transmission Date: 20110831
  Serious: Yes (Hospitalization)
  Sender: FDA-Public Use
  Company Number: None

PATIENT
  Sex: Female
  Weight: 57.9 kg

DRUGS (2)
  1. TENSIROLIMUS [Suspect]
  2. IRINOTECAN HCL [Suspect]

REACTIONS (6)
  - DIARRHOEA [None]
  - NAUSEA [None]
  - ABDOMINAL PAIN [None]
  - RENAL FAILURE ACUTE [None]
  - VOMITING [None]
  - ASTHENIA [None]
